FAERS Safety Report 9462936 (Version 2)
Quarter: 2013Q3

REPORT INFORMATION
  Report Type: Report from Study
  Country: FR (occurrence: FR)
  Receive Date: 20130816
  Receipt Date: 20130904
  Transmission Date: 20140515
  Serious: Yes (Other)
  Sender: FDA-Public Use
  Company Number: FR-UCBSA-094842

PATIENT
  Age: 70 Year
  Sex: Female
  Weight: 58 kg

DRUGS (3)
  1. CIMZIA [Suspect]
     Indication: RHEUMATOID ARTHRITIS
     Route: 058
     Dates: start: 20130204, end: 20130730
  2. PREDNISONE [Concomitant]
     Indication: RHEUMATOID ARTHRITIS
     Route: 048
     Dates: start: 1980
  3. METHOTREXATE [Concomitant]
     Indication: RHEUMATOID ARTHRITIS
     Route: 048
     Dates: start: 2006

REACTIONS (1)
  - Lichenoid keratosis [Recovered/Resolved]
